FAERS Safety Report 16460368 (Version 1)
Quarter: 2019Q2

REPORT INFORMATION
  Report Type: Spontaneous
  Country: US (occurrence: US)
  Receive Date: 20190620
  Receipt Date: 20190620
  Transmission Date: 20190711
  Serious: No
  Sender: FDA-Public Use
  Company Number: US-BRACCO-2019US02055

PATIENT
  Sex: Male

DRUGS (1)
  1. PROHANCE [Suspect]
     Active Substance: GADOTERIDOL
     Indication: NUCLEAR MAGNETIC RESONANCE IMAGING
     Dosage: 13 ML, SINGLE
     Dates: start: 20190417, end: 20190417

REACTIONS (3)
  - Nausea [Unknown]
  - Contraindicated product administered [Unknown]
  - Vomiting [Unknown]

NARRATIVE: CASE EVENT DATE: 20190417
